FAERS Safety Report 5480356-1 (Version None)
Quarter: 2007Q4

REPORT INFORMATION
  Report Type: 
  Country: None (occurrence: None)
  Receive Date: 20071009
  Receipt Date: 20070927
  Transmission Date: 20080405
  Serious: Yes (Hospitalization)
  Sender: FDA-Public Use
  Company Number: US-ROCHE-521962

PATIENT
  Age: 60 Year
  Sex: Male
  Weight: 59.5 kg

DRUGS (12)
  1. PEG-INTERFERON ALFA 2A (RO 25-8310) [Suspect]
     Indication: HEPATITIS C
     Route: 058
     Dates: start: 20070615, end: 20070713
  2. RIBAVIRIN [Suspect]
     Indication: HEPATITIS C
     Route: 048
     Dates: start: 20070615, end: 20070715
  3. BLINDED VX-950 [Suspect]
     Indication: HEPATITIS C
     Route: 048
     Dates: start: 20070615, end: 20070715
  4. ACTOS [Concomitant]
  5. ZETIA [Concomitant]
  6. GEMFIBROZIL [Concomitant]
  7. BENICAR [Concomitant]
  8. PAXIL [Concomitant]
  9. FLOMAX [Concomitant]
  10. COMPAZINE [Concomitant]
  11. NORVASC [Concomitant]
  12. VICODIN ES [Concomitant]
     Indication: PAIN

REACTIONS (3)
  - ANAEMIA [None]
  - DEHYDRATION [None]
  - METABOLIC ACIDOSIS [None]
